FAERS Safety Report 16586370 (Version 1)
Quarter: 2019Q3

REPORT INFORMATION
  Report Type: Spontaneous
  Country: FR (occurrence: FR)
  Receive Date: 20190717
  Receipt Date: 20190717
  Transmission Date: 20191004
  Serious: Yes (Hospitalization)
  Sender: FDA-Public Use
  Company Number: FR-MYLANLABS-2019M1066677

PATIENT
  Age: 69 Year
  Sex: Female

DRUGS (18)
  1. ATORVASTATIN [Suspect]
     Active Substance: ATORVASTATIN
     Indication: DYSLIPIDAEMIA
     Dosage: ? 18H
     Route: 048
     Dates: start: 20180803
  2. FUROSEMIDE. [Concomitant]
     Active Substance: FUROSEMIDE
     Dosage: 40 MILLIGRAM, QD
     Route: 048
  3. TERCIAN                            /00759301/ [Concomitant]
     Active Substance: CYAMEMAZINE
     Dosage: 25 MILLIGRAM, QD
     Route: 048
     Dates: start: 20180802
  4. LANTUS [Concomitant]
     Active Substance: INSULIN GLARGINE
     Dosage: UNK
     Route: 058
     Dates: start: 20180807
  5. LEVOTHYROXINE                      /00068002/ [Concomitant]
     Active Substance: LEVOTHYROXINE
     Dosage: 1 DOSAGE FORM, QD
     Route: 048
  6. DIFFU K [Concomitant]
     Active Substance: POTASSIUM CHLORIDE
     Dosage: 600 MILLIGRAM, QD
     Route: 048
     Dates: start: 20180808
  7. ACTILYSE [Concomitant]
     Active Substance: ALTEPLASE
     Dosage: UNK
     Route: 042
     Dates: start: 20180810, end: 20180810
  8. CEFAZOLIN [Suspect]
     Active Substance: CEFAZOLIN
     Indication: PURULENT PERICARDITIS
     Dosage: 6 GRAM, QD
     Route: 042
     Dates: start: 20180803, end: 20180821
  9. OXYNORMORO [Concomitant]
     Active Substance: OXYCODONE HYDROCHLORIDE
     Dosage: UNK
     Route: 048
     Dates: start: 20180817, end: 20180831
  10. SERESTA [Concomitant]
     Active Substance: OXAZEPAM
     Dosage: 1 DOSAGE FORM, QD
     Route: 048
     Dates: start: 20180802
  11. TERBUTALINE [Concomitant]
     Active Substance: TERBUTALINE
     Dosage: UNK
     Route: 055
     Dates: start: 20180803, end: 20180831
  12. DOLIPRANE [Concomitant]
     Active Substance: ACETAMINOPHEN
     Dosage: UNK
     Route: 048
  13. SPIRIVA [Concomitant]
     Active Substance: TIOTROPIUM BROMIDE MONOHYDRATE
     Dosage: UNK
     Route: 055
  14. KARDEGIC [Concomitant]
     Active Substance: ASPIRIN DL-LYSINE
     Dosage: 1 DOSAGE FORM, QD
     Route: 048
     Dates: start: 20180807
  15. PANTOPRAZOLE [Suspect]
     Active Substance: PANTOPRAZOLE
     Indication: PRODUCT USED FOR UNKNOWN INDICATION
     Dosage: 40 MILLIGRAM, QD
     Route: 048
     Dates: start: 20180810
  16. EFFEXOR [Concomitant]
     Active Substance: VENLAFAXINE HYDROCHLORIDE
     Dosage: 1 DOSAGE FORM, QD
     Dates: start: 20180802
  17. IMOVANE [Concomitant]
     Active Substance: ZOPICLONE
     Dosage: 1 DOSAGE FORM, QD
     Route: 048
     Dates: start: 20180802
  18. ATROVENT [Concomitant]
     Active Substance: IPRATROPIUM BROMIDE
     Dosage: UNK
     Route: 055
     Dates: start: 20180803, end: 20180831

REACTIONS (1)
  - Vascular purpura [Recovering/Resolving]

NARRATIVE: CASE EVENT DATE: 20180819
